FAERS Safety Report 7605716-1 (Version None)
Quarter: 2011Q3

REPORT INFORMATION
  Report Type: 
  Country: None (occurrence: None)
  Receive Date: 20110713
  Receipt Date: 20110705
  Transmission Date: 20111222
  Serious: Yes (Other)
  Sender: FDA-Public Use
  Company Number: US-PFIZER INC-2011150106

PATIENT
  Age: 79 Year
  Sex: Female

DRUGS (7)
  1. LATANOPROST [Suspect]
     Indication: GLAUCOMA
     Dosage: UNK
  2. UREX [Concomitant]
     Dosage: UNK, DAILY
  3. INDERAL [Concomitant]
     Indication: EYE DISORDER
     Dosage: 10 MG, 3X/DAY
     Route: 048
  4. PREMARIN [Concomitant]
     Dosage: 0.625 MG, UNK
  5. XANAX [Concomitant]
     Dosage: 0.25 MG, AS NEEDED
     Route: 048
  6. CRESTOR [Concomitant]
     Indication: BLOOD CHOLESTEROL INCREASED
     Dosage: UNK
  7. XALATAN [Suspect]
     Indication: GLAUCOMA
     Dosage: UNK
     Route: 047
     Dates: start: 20090101

REACTIONS (9)
  - CATARACT OPERATION [None]
  - EYE PRURITUS [None]
  - DARK CIRCLES UNDER EYES [None]
  - HYPERSENSITIVITY [None]
  - EYE SWELLING [None]
  - SWELLING FACE [None]
  - OCULAR HYPERAEMIA [None]
  - VISION BLURRED [None]
  - HEADACHE [None]
